FAERS Safety Report 19470562 (Version 1)
Quarter: 2021Q2

REPORT INFORMATION
  Report Type: Spontaneous
  Country: US (occurrence: US)
  Receive Date: 20210628
  Receipt Date: 20210628
  Transmission Date: 20210717
  Serious: No
  Sender: FDA-Public Use
  Company Number: US-GLAXOSMITHKLINE-2020410209

PATIENT

DRUGS (3)
  1. ADVIL [Suspect]
     Active Substance: IBUPROFEN
     Indication: BACK PAIN
     Dosage: UNK (TOOK PLENTY OF ADVIL AND ALEVE)
  2. ALEVE [Suspect]
     Active Substance: NAPROXEN SODIUM
     Indication: BACK PAIN
     Dosage: UNK (TOOK PLENTY OF ADVIL AND ALEVE)
  3. DOANS EXTRA STRENGTH [Suspect]
     Active Substance: MAGNESIUM SALICYLATE
     Indication: BACK PAIN
     Dosage: 4 DF [I TOOK 4 DOAN PILLS FOR MY BACK PAIN AND I ALSO TOOK PLENTY OF ADVIL AND ALEVE]

REACTIONS (1)
  - Overdose [Unknown]
